FAERS Safety Report 4316623-4 (Version None)
Quarter: 2004Q1

REPORT INFORMATION
  Report Type: 
  Country: None (occurrence: None)
  Receive Date: 20040311
  Receipt Date: 20040305
  Transmission Date: 20041129
  Serious: Yes (Other)
  Sender: FDA-Public Use
  Company Number: 2004200710IN

PATIENT
  Age: 7 Year
  Sex: Male

DRUGS (2)
  1. DAPSONE [Suspect]
     Dosage: 50 MG, QD, ORAL
     Route: 048
  2. DELTA-CORTEF [Suspect]
     Indication: PEMPHIGUS
     Dosage: 2.5 MG/KG, DAILY, ORAL
     Route: 048

REACTIONS (6)
  - CUSHINGOID [None]
  - JAUNDICE [None]
  - PHOTOSENSITIVITY REACTION [None]
  - PYREXIA [None]
  - RASH SCALY [None]
  - SKIN ULCER [None]
